FAERS Safety Report 5660743-9 (Version None)
Quarter: 2008Q1

REPORT INFORMATION
  Report Type: 
  Country: None (occurrence: None)
  Receive Date: 20080311
  Receipt Date: 20080303
  Transmission Date: 20080703
  Serious: Yes (Hospitalization, Disabling)
  Sender: FDA-Public Use
  Company Number: US-ELI_LILLY_AND_COMPANY-US200712004253

PATIENT
  Sex: Female
  Weight: 68.027 kg

DRUGS (9)
  1. BYETTA [Suspect]
     Dosage: 5 UG, 2/D
     Route: 058
     Dates: start: 20060101, end: 20060101
  2. BYETTA [Suspect]
     Dosage: 10 UG, 2/D
     Route: 058
     Dates: start: 20060101, end: 20070813
  3. PROZAC [Concomitant]
     Indication: DEPRESSION
     Dosage: UNK, UNKNOWN
     Dates: end: 20070813
  4. PROZAC [Concomitant]
     Dosage: UNK, UNKNOWN
     Dates: start: 20070101
  5. METFORMIN HCL [Concomitant]
     Dosage: UNK, UNKNOWN
     Dates: end: 20070813
  6. METFORMIN HCL [Concomitant]
     Dosage: UNK, UNKNOWN
     Route: 048
     Dates: start: 20070101
  7. LOTREL [Concomitant]
     Indication: HYPERTENSION
     Dosage: UNK, UNKNOWN
     Route: 048
     Dates: start: 19980101, end: 20070813
  8. NEXIUM [Concomitant]
     Dosage: UNK, UNKNOWN
  9. HUMALOG [Concomitant]
     Dosage: UNK, AS NEEDED
     Dates: start: 20070813

REACTIONS (8)
  - ABDOMINAL DISTENSION [None]
  - BLOOD PRESSURE INCREASED [None]
  - CEREBROVASCULAR ACCIDENT [None]
  - ERUCTATION [None]
  - LETHARGY [None]
  - NEPHROLITHIASIS [None]
  - PANCREATITIS [None]
  - WEIGHT DECREASED [None]
